FAERS Safety Report 6727222-9 (Version None)
Quarter: 2010Q2

REPORT INFORMATION
  Report Type: 
  Country: None (occurrence: None)
  Receive Date: 20100512
  Receipt Date: 20100202
  Transmission Date: 20101027
  Serious: No
  Sender: FDA-Public Use
  Company Number: 1000011435

PATIENT
  Sex: Female

DRUGS (1)
  1. SAVELLA [Suspect]
     Indication: FIBROMYALGIA
     Dosage: 12.5 MG (12.5 MG,1 IN 1 D),ORAL
     Route: 048
     Dates: start: 20090827, end: 20090827

REACTIONS (5)
  - AFFECT LABILITY [None]
  - EUPHORIC MOOD [None]
  - HEADACHE [None]
  - NERVOUSNESS [None]
  - PARAESTHESIA [None]
